FAERS Safety Report 10187232 (Version 1)
Quarter: 2014Q2

REPORT INFORMATION
  Report Type: Spontaneous
  Country: GB (occurrence: None)
  Receive Date: 20140520
  Receipt Date: 20140520
  Transmission Date: 20141212
  Serious: No
  Sender: FDA-Public Use
  Company Number: 2014P1004063

PATIENT
  Age: 81 Year
  Sex: Female

DRUGS (15)
  1. PHENYTOIN [Suspect]
     Indication: COMPLEX PARTIAL SEIZURES
     Route: 042
     Dates: start: 20131026, end: 20131026
  2. AMLODIPINE [Concomitant]
  3. ATENOLOL [Concomitant]
  4. CLOPIDOGREL [Concomitant]
  5. DONEPEZIL [Concomitant]
  6. HUMULIN INSULIN [Concomitant]
  7. LANSOPRAZOLE [Concomitant]
  8. LEVOTHYROXINE [Concomitant]
  9. METRONIDAZOLE [Concomitant]
  10. PARACETAMOL [Concomitant]
  11. SERTRALINE [Concomitant]
  12. SIMVASTATIN [Concomitant]
  13. SODIUM VALPROATE [Concomitant]
  14. DIAZEPAM [Concomitant]
  15. SODIUM CHLORIDE [Concomitant]

REACTIONS (3)
  - Drug dose omission [None]
  - Feeding tube complication [None]
  - Sudden death [None]
